FAERS Safety Report 9154649 (Version 1)
Quarter: 2013Q1

REPORT INFORMATION
  Report Type: Spontaneous
  Country: US (occurrence: None)
  Receive Date: 20130305
  Receipt Date: 20130305
  Transmission Date: 20140127
  Serious: Yes (Hospitalization)
  Sender: FDA-Public Use
  Company Number: None

PATIENT
  Sex: Male
  Weight: 62.6 kg

DRUGS (9)
  1. DAPSONE [Suspect]
     Indication: ANTIFUNGAL PROPHYLAXIS
     Route: 048
     Dates: start: 20120827, end: 20121009
  2. DEXAMETHASONE [Concomitant]
  3. DOCUSATE SODIUM [Concomitant]
  4. HYDROCODONE/ACETAMINOPHEN [Concomitant]
  5. MERCAPTOPURINE [Concomitant]
  6. METHOTREXATE [Concomitant]
  7. ONDANSETRON [Concomitant]
  8. MIRALEX [Concomitant]
  9. RANITIDINE [Concomitant]

REACTIONS (2)
  - Methaemoglobinaemia [None]
  - Pneumonia [None]
